FAERS Safety Report 14244811 (Version 1)
Quarter: 2017Q4

REPORT INFORMATION
  Report Type: Spontaneous
  Country: RU (occurrence: RU)
  Receive Date: 20171201
  Receipt Date: 20171201
  Transmission Date: 20180321
  Serious: Yes (Hospitalization, Other)
  Sender: FDA-Public Use
  Company Number: RU-GILEAD-2017-0307977

PATIENT
  Age: 67 Year
  Sex: Female

DRUGS (20)
  1. ACERYCAL [Concomitant]
     Indication: CARDIAC FAILURE CHRONIC
  2. CLOPIDOGREL [Concomitant]
     Active Substance: CLOPIDOGREL BISULFATE
     Indication: PRINZMETAL ANGINA
     Dosage: 75 MG, BID
     Route: 048
  3. CLOPIDOGREL [Concomitant]
     Active Substance: CLOPIDOGREL BISULFATE
     Indication: CARDIAC FAILURE CHRONIC
  4. ATORVASTATIN [Concomitant]
     Active Substance: ATORVASTATIN
     Indication: PRINZMETAL ANGINA
     Route: 048
  5. RANOLAZINE. [Suspect]
     Active Substance: RANOLAZINE
     Indication: CARDIAC FAILURE CHRONIC
  6. RANOLAZINE. [Suspect]
     Active Substance: RANOLAZINE
     Indication: BUNDLE BRANCH BLOCK
  7. ACERYCAL [Concomitant]
     Indication: PRINZMETAL ANGINA
     Dosage: 10 MG + 5 MG
     Route: 048
  8. ACETYLSALICYLIC ACID [Concomitant]
     Active Substance: ASPIRIN
     Indication: PRINZMETAL ANGINA
  9. ACERYCAL [Concomitant]
     Indication: BUNDLE BRANCH BLOCK
  10. CLOPIDOGREL [Concomitant]
     Active Substance: CLOPIDOGREL BISULFATE
     Indication: HYPERTENSIVE HEART DISEASE
  11. RANOLAZINE. [Suspect]
     Active Substance: RANOLAZINE
     Indication: PRINZMETAL ANGINA
     Route: 048
     Dates: start: 20171113, end: 201711
  12. ACETYLSALICYLIC ACID [Concomitant]
     Active Substance: ASPIRIN
     Indication: BUNDLE BRANCH BLOCK
  13. CLOPIDOGREL [Concomitant]
     Active Substance: CLOPIDOGREL BISULFATE
     Indication: BUNDLE BRANCH BLOCK
  14. ATORVASTATIN [Concomitant]
     Active Substance: ATORVASTATIN
     Indication: HYPERTENSIVE HEART DISEASE
  15. ATORVASTATIN [Concomitant]
     Active Substance: ATORVASTATIN
     Indication: CARDIAC FAILURE CHRONIC
  16. RANOLAZINE. [Suspect]
     Active Substance: RANOLAZINE
     Indication: HYPERTENSIVE HEART DISEASE
  17. ACETYLSALICYLIC ACID [Concomitant]
     Active Substance: ASPIRIN
     Indication: HYPERTENSIVE HEART DISEASE
  18. ACETYLSALICYLIC ACID [Concomitant]
     Active Substance: ASPIRIN
     Indication: CARDIAC FAILURE CHRONIC
  19. ACERYCAL [Concomitant]
     Indication: HYPERTENSIVE HEART DISEASE
  20. ATORVASTATIN [Concomitant]
     Active Substance: ATORVASTATIN
     Indication: BUNDLE BRANCH BLOCK

REACTIONS (2)
  - Product use in unapproved indication [Recovered/Resolved]
  - Angina pectoris [Not Recovered/Not Resolved]

NARRATIVE: CASE EVENT DATE: 201711
